FAERS Safety Report 10159796 (Version 1)
Quarter: 2014Q2

REPORT INFORMATION
  Report Type: Spontaneous
  Country: US (occurrence: US)
  Receive Date: 20140508
  Receipt Date: 20140508
  Transmission Date: 20141212
  Serious: Yes (Hospitalization)
  Sender: FDA-Public Use
  Company Number: US-ASTRAZENECA-2014SE29866

PATIENT
  Age: 32 Year
  Sex: Female
  Weight: 68 kg

DRUGS (1)
  1. SYMBICORT [Suspect]
     Dosage: TWO PUFFS EITHER ONCE OR TWICE DAILY, UNKNOWN FREQUENCY
     Route: 055
     Dates: end: 2014

REACTIONS (2)
  - Asthma [Recovered/Resolved]
  - Intentional product misuse [Unknown]
